FAERS Safety Report 5796356-8 (Version None)
Quarter: 2008Q3

REPORT INFORMATION
  Report Type: 
  Country: None (occurrence: None)
  Receive Date: 20080701
  Receipt Date: 20080618
  Transmission Date: 20090109
  Serious: Yes (Hospitalization, Other)
  Sender: FDA-Public Use
  Company Number: US-BAYER-200812528BCC

PATIENT
  Sex: Female
  Weight: 50 kg

DRUGS (6)
  1. PHILLIPS MILK OF MAGNESIA MINT [Suspect]
     Indication: FAECES HARD
     Dosage: AS USED: 45 ML
     Route: 048
     Dates: end: 20080501
  2. PRILOSEC [Concomitant]
  3. ZOCOR [Concomitant]
  4. TYLENOL [Concomitant]
  5. GLUCOSAMINE SUPPLEMENT [Concomitant]
  6. ICHYDRO 1 [Concomitant]
     Indication: ANTICOAGULANT THERAPY

REACTIONS (2)
  - FAECES HARD [None]
  - TRANSIENT ISCHAEMIC ATTACK [None]
